FAERS Safety Report 5333130-0 (Version None)
Quarter: 2007Q2

REPORT INFORMATION
  Report Type: 
  Country: None (occurrence: None)
  Receive Date: 20070521
  Receipt Date: 20070521
  Transmission Date: 20071010
  Serious: Yes (Hospitalization, Other)
  Sender: FDA-Public Use
  Company Number: None

PATIENT
  Age: 65 Year
  Sex: Female
  Weight: 61.2356 kg

DRUGS (7)
  1. BONIVA [Suspect]
     Indication: OSTEOPOROSIS
     Dosage: 1 TABLET MONTHLY PO
     Route: 048
     Dates: start: 20061101, end: 20070201
  2. PREDISONE [Concomitant]
  3. IMURAN [Concomitant]
  4. FOLIC ACID [Concomitant]
  5. LOMOTIL [Concomitant]
  6. PHAZYME [Concomitant]
  7. PREMPRO [Concomitant]

REACTIONS (6)
  - DIZZINESS [None]
  - DRUG HYPERSENSITIVITY [None]
  - HEADACHE [None]
  - LOSS OF CONSCIOUSNESS [None]
  - NAUSEA [None]
  - SENSORY DISTURBANCE [None]
